FAERS Safety Report 4379652-0 (Version None)
Quarter: 2004Q2

REPORT INFORMATION
  Report Type: 
  Country: None (occurrence: None)
  Receive Date: 20040617
  Receipt Date: 20040527
  Transmission Date: 20050107
  Serious: Yes (Hospitalization)
  Sender: FDA-Public Use
  Company Number: PHEH2004US05929

PATIENT
  Age: 54 Year
  Sex: Female

DRUGS (18)
  1. ZELNORM [Suspect]
     Dosage: 6 MG, QD
     Route: 048
     Dates: start: 20040402, end: 20040502
  2. COLACE [Concomitant]
     Indication: CONSTIPATION
     Dosage: UNK, BID
  3. SENOKOT [Concomitant]
     Indication: CONSTIPATION
     Dosage: UNK, BID
  4. LIPITOR [Concomitant]
     Dosage: 20 MG, QD
  5. ASPIRIN [Concomitant]
     Dosage: 325 MG, QD
  6. WELLBUTRIN [Concomitant]
     Dosage: 150 MG, BID
  7. DEXTROSTAT [Concomitant]
     Dosage: UNK, TID
  8. KLONOPIN [Concomitant]
     Dosage: UNK, TID
  9. DARVOCET-N 100 [Concomitant]
     Dosage: UNK, TID
  10. MULTI-VITAMINS [Concomitant]
     Dosage: UNK, QD
  11. PROTONIX [Concomitant]
     Dosage: 40 MG, QD
  12. ZESTRIL [Concomitant]
     Dosage: 20 MG, QD
  13. CARDIZEM [Concomitant]
     Dosage: 120 MG, QD
  14. FUROSEMIDE [Concomitant]
     Dosage: 80 MG, QD
  15. ZANTAC [Concomitant]
     Dosage: 75 MG, BID
  16. TUMS [Concomitant]
     Dosage: UNK, PRN
  17. POTASSIUM [Concomitant]
     Dosage: 20 MEQ, QD
  18. DEXEDRINE [Concomitant]

REACTIONS (16)
  - ABDOMINAL PAIN [None]
  - ABDOMINAL TENDERNESS [None]
  - ALANINE AMINOTRANSFERASE INCREASED [None]
  - BIOPSY COLON ABNORMAL [None]
  - BLOOD GLUCOSE INCREASED [None]
  - BLOOD UREA INCREASED [None]
  - CHOLELITHIASIS [None]
  - COLITIS ISCHAEMIC [None]
  - COLITIS ULCERATIVE [None]
  - COLONOSCOPY ABNORMAL [None]
  - COMPUTERISED TOMOGRAM ABNORMAL [None]
  - DIARRHOEA [None]
  - DIARRHOEA HAEMORRHAGIC [None]
  - NAUSEA [None]
  - VOMITING [None]
  - WHITE BLOOD CELL COUNT INCREASED [None]
